FAERS Safety Report 9765880 (Version 1)
Quarter: 2013Q4

REPORT INFORMATION
  Report Type: Spontaneous
  Country: US (occurrence: US)
  Receive Date: 20131217
  Receipt Date: 20131217
  Transmission Date: 20140711
  Serious: No
  Sender: FDA-Public Use
  Company Number: US-GLAXOSMITHKLINE-A1012679A

PATIENT
  Sex: Female

DRUGS (2)
  1. VOTRIENT [Suspect]
     Indication: PRODUCT USED FOR UNKNOWN INDICATION
     Dosage: 800MG PER DAY
     Route: 048
     Dates: end: 20130128
  2. NO CONCURRENT MEDICATION [Concomitant]

REACTIONS (5)
  - Headache [Recovering/Resolving]
  - Nausea [Unknown]
  - Asthenia [Unknown]
  - Myalgia [Unknown]
  - Increased tendency to bruise [Unknown]
